FAERS Safety Report 4979497-4 (Version None)
Quarter: 2006Q1

REPORT INFORMATION
  Report Type: 
  Country: None (occurrence: None)
  Receive Date: 20060223
  Receipt Date: 20050826
  Transmission Date: 20060701
  Serious: No
  Sender: FDA-Public Use
  Company Number: HQWYE156729AUG05

PATIENT
  Age: 59 Year
  Sex: Male

DRUGS (6)
  1. EFFEXOR [Suspect]
     Dosage: 75 MG 1X PER 1 DAY ORAL
     Route: 048
     Dates: start: 20040730
  2. CARDURA [Suspect]
     Dosage: 8 MG 2X PER 1 DAY
     Route: 065
  3. COZAAR [Suspect]
     Dosage: 100 MG 1X PER 1 DAY
     Route: 065
  4. TRAZODONE HCL [Suspect]
     Dosage: 50 MG 1X PER 1 DAY
     Route: 065
  5. XANAX [Suspect]
     Dosage: 1 MG 4 X PER 1 DAY
     Route: 065
  6. ZYPREXA [Suspect]
     Dosage: 10 MG 1X PER 1 DAY
     Route: 065
     Dates: start: 20040701

REACTIONS (2)
  - ENAMEL ANOMALY [None]
  - WRONG TECHNIQUE IN DRUG USAGE PROCESS [None]
